FAERS Safety Report 10228862 (Version 1)
Quarter: 2014Q2

REPORT INFORMATION
  Report Type: Spontaneous
  Country: US (occurrence: US)
  Receive Date: 20140610
  Receipt Date: 20140610
  Transmission Date: 20141212
  Serious: No
  Sender: FDA-Public Use
  Company Number: US-TARO-2014TAR00042

PATIENT
  Age: 32 Year
  Sex: Female

DRUGS (6)
  1. CLOTRIMAZOLE VAGINAL CREAM USP 2% 3 DAY [Suspect]
     Indication: VULVOVAGINAL MYCOTIC INFECTION
     Dosage: 1 DF, 1X/DAY
     Route: 067
     Dates: start: 20140124, end: 20140126
  2. CLOTRIMAZOLE VAGINAL CREAM USP 2% 3 DAY [Suspect]
     Indication: PRURITUS
  3. CLOTRIMAZOLE VAGINAL CREAM USP 2% 3 DAY [Suspect]
     Indication: VAGINAL DISCHARGE
  4. SYNTHROID [Concomitant]
  5. PEPCID [Concomitant]
  6. SEROQUEL [Concomitant]

REACTIONS (2)
  - Bloody discharge [Not Recovered/Not Resolved]
  - Drug effect incomplete [Unknown]
